FAERS Safety Report 11889677 (Version 1)
Quarter: 2016Q1

REPORT INFORMATION
  Report Type: Report from Study
  Country: US (occurrence: US)
  Receive Date: 20160105
  Receipt Date: 20160105
  Transmission Date: 20160526
  Serious: Yes (Death)
  Sender: FDA-Public Use
  Company Number: US-BAYER-2015-117810

PATIENT
  Age: 54 Year
  Sex: Male

DRUGS (4)
  1. ADEMPAS [Suspect]
     Active Substance: RIOCIGUAT
     Indication: PULMONARY HYPERTENSION
     Dosage: UNK
     Dates: start: 20150217
  2. ADEMPAS [Suspect]
     Active Substance: RIOCIGUAT
     Indication: PULMONARY HYPERTENSION
     Dosage: 2.5 UNK, UNK
  3. ADEMPAS [Suspect]
     Active Substance: RIOCIGUAT
     Indication: PULMONARY HYPERTENSION
     Dosage: 1 MG, TID
     Route: 048
     Dates: start: 20150218
  4. TRACLEER [Concomitant]
     Active Substance: BOSENTAN

REACTIONS (6)
  - Oedema [None]
  - Sudden death [Fatal]
  - Constipation [Unknown]
  - Oedema peripheral [None]
  - Dyspnoea [None]
  - Decreased appetite [Unknown]

NARRATIVE: CASE EVENT DATE: 20150918
